FAERS Safety Report 10213516 (Version 1)
Quarter: 2014Q2

REPORT INFORMATION
  Report Type: Spontaneous
  Country: US (occurrence: None)
  Receive Date: 20140529
  Receipt Date: 20140529
  Transmission Date: 20141212
  Serious: Yes (Hospitalization)
  Sender: FDA-Public Use
  Company Number: 2354243

PATIENT
  Age: 71 Year
  Sex: Male
  Weight: 84 kg

DRUGS (11)
  1. GEMCITABINE FOR INJECTION, USP (GEMCITABINE HYDROCHLORIDE) [Suspect]
     Indication: BLADDER CANCER
     Route: 041
     Dates: start: 20130417, end: 20130515
  2. CISPLATIN (CISPLATIN) [Suspect]
     Indication: BLADDER CANCER
     Dosage: CYCLICAL
     Route: 041
     Dates: start: 20130417, end: 20130515
  3. ACETYLSALICYLIC ACUID [Concomitant]
  4. PRAVASTATIN [Concomitant]
  5. OLANZAPINE (OLANZAPINE [Concomitant]
  6. MANNITOL [Concomitant]
  7. CEFAZOLIN SODIUM [Concomitant]
  8. FENTAYL [Concomitant]
  9. PALONOSETRON [Concomitant]
  10. APREPITANT [Concomitant]
  11. DEXAMETHASONE [Concomitant]

REACTIONS (7)
  - Pulmonary embolism [None]
  - Urinary tract infection [None]
  - Sinus tachycardia [None]
  - Toxicity to various agents [None]
  - Blood pressure systolic increased [None]
  - Deep vein thrombosis [None]
  - Deep vein thrombosis [None]
